FAERS Safety Report 18197264 (Version 1)
Quarter: 2020Q3

REPORT INFORMATION
  Report Type: Spontaneous
  Country: US (occurrence: US)
  Receive Date: 20200825
  Receipt Date: 20200825
  Transmission Date: 20201103
  Serious: Yes (Hospitalization)
  Sender: FDA-Public Use
  Company Number: None

PATIENT
  Sex: Male

DRUGS (7)
  1. CALTRATE [Concomitant]
     Active Substance: CALCIUM CARBONATE
  2. ZYTIGA [Suspect]
     Active Substance: ABIRATERONE ACETATE
     Route: 048
     Dates: start: 20191005
  3. JAKAFI [Concomitant]
     Active Substance: RUXOLITINIB
  4. IRON SLOW [Concomitant]
  5. PREDNSIONE [Concomitant]
     Active Substance: PREDNISONE
  6. TYLENOL [Concomitant]
     Active Substance: ACETAMINOPHEN
  7. VITAMIN C [Concomitant]
     Active Substance: ASCORBIC ACID

REACTIONS (2)
  - Hospitalisation [None]
  - Therapy interrupted [None]
